FAERS Safety Report 23851924 (Version 1)
Quarter: 2024Q2

REPORT INFORMATION
  Report Type: Spontaneous
  Country: US (occurrence: None)
  Receive Date: 20240514
  Receipt Date: 20240514
  Transmission Date: 20240716
  Serious: No
  Sender: FDA-Public Use
  Company Number: 2024A099314

PATIENT

DRUGS (1)
  1. SYMBICORT [Suspect]
     Active Substance: BUDESONIDE\FORMOTEROL FUMARATE DIHYDRATE
     Dosage: 80 UG, TWO TIMES A DAY
     Route: 055

REACTIONS (3)
  - Oropharyngeal pain [Unknown]
  - Candida infection [Unknown]
  - Device use issue [Unknown]
